FAERS Safety Report 6929908-X (Version None)
Quarter: 2010Q3

REPORT INFORMATION
  Report Type: 
  Country: None (occurrence: None)
  Receive Date: 20100813
  Receipt Date: 20100803
  Transmission Date: 20110219
  Serious: Yes (Hospitalization)
  Sender: FDA-Public Use
  Company Number: 8044250

PATIENT
  Sex: Female
  Weight: 74.6 kg

DRUGS (5)
  1. CERTOLIZUMAB PEGOL (CERTOLIZUMAB PEGOL) [Suspect]
     Indication: RHEUMATOID ARTHRITIS
     Dosage: 400 MG 1X/2 WEEKS - NR OF DOSES: 60 SUBCUTANEOUS; 200 MG 1X/2 WEEKS, - NR OF DOSES: 30 SUBCUTANEOUS
     Route: 058
     Dates: start: 20050825, end: 20071213
  2. CERTOLIZUMAB PEGOL (CERTOLIZUMAB PEGOL) [Suspect]
     Indication: RHEUMATOID ARTHRITIS
     Dosage: 400 MG 1X/2 WEEKS - NR OF DOSES: 60 SUBCUTANEOUS; 200 MG 1X/2 WEEKS, - NR OF DOSES: 30 SUBCUTANEOUS
     Route: 058
     Dates: start: 20071223, end: 20090317
  3. PREDNISOLONE [Concomitant]
  4. METHOTREXATE [Concomitant]
  5. OMEPRAZOLE [Concomitant]

REACTIONS (2)
  - ARTHRITIS INFECTIVE [None]
  - KNEE ARTHROPLASTY [None]
